FAERS Safety Report 5834029-3 (Version None)
Quarter: 2008Q3

REPORT INFORMATION
  Report Type: 
  Country: None (occurrence: None)
  Receive Date: 20080805
  Receipt Date: 20080725
  Transmission Date: 20090109
  Serious: Yes (Life-Threatening, Hospitalization, Other)
  Sender: FDA-Public Use
  Company Number: JP-MERCK-0807USA01634

PATIENT
  Age: 83 Year
  Sex: Female

DRUGS (7)
  1. ZETIA [Suspect]
     Indication: HYPERLIPIDAEMIA
     Route: 048
     Dates: start: 20080603, end: 20080623
  2. HYZAAR [Concomitant]
     Route: 048
  3. LOXOPROFEN [Concomitant]
     Route: 065
  4. CHLORPHENESIN [Concomitant]
     Route: 065
  5. NIFEDIPINE [Concomitant]
     Route: 065
  6. ENALAPRIL MALEATE [Concomitant]
     Route: 065
  7. ALLOPURINOL [Concomitant]
     Route: 065
     Dates: start: 20080507

REACTIONS (4)
  - BLOOD PRESSURE DECREASED [None]
  - PYREXIA [None]
  - RASH [None]
  - RENAL IMPAIRMENT [None]
